FAERS Safety Report 17016061 (Version 1)
Quarter: 2019Q4

REPORT INFORMATION
  Report Type: Spontaneous
  Country: GB (occurrence: GB)
  Receive Date: 20191111
  Receipt Date: 20191111
  Transmission Date: 20200122
  Serious: Yes (Other)
  Sender: FDA-Public Use
  Company Number: GB-GLAXOSMITHKLINE-GB2019GSK204302

PATIENT
  Age: 26 Year
  Sex: Male
  Weight: 91 kg

DRUGS (1)
  1. NIQUITIN [Suspect]
     Active Substance: NICOTINE
     Indication: EX-TOBACCO USER
     Dosage: UNK (16 MG)
     Route: 062
     Dates: start: 199907

REACTIONS (4)
  - Hallucinations, mixed [Unknown]
  - Cataplexy [Unknown]
  - Narcolepsy [Unknown]
  - Sleep paralysis [Unknown]

NARRATIVE: CASE EVENT DATE: 199907
